FAERS Safety Report 22277002 (Version 6)
Quarter: 2023Q4

REPORT INFORMATION
  Report Type: Report from Study
  Country: US (occurrence: US)
  Receive Date: 20230503
  Receipt Date: 20231203
  Transmission Date: 20240110
  Serious: No
  Sender: FDA-Public Use
  Company Number: US-002147023-NVSC2023US096730

PATIENT
  Sex: Female

DRUGS (1)
  1. COSENTYX [Suspect]
     Active Substance: SECUKINUMAB
     Indication: Psoriasis
     Dosage: 150 MG, QMO
     Route: 058

REACTIONS (20)
  - Seborrhoeic keratosis [Unknown]
  - Haemangioma of skin [Unknown]
  - Papule [Unknown]
  - Lentigo [Unknown]
  - Macule [Unknown]
  - Skin lesion [Unknown]
  - Guttate psoriasis [Unknown]
  - Skin hypertrophy [Unknown]
  - Pigmentation disorder [Unknown]
  - Melanocytic naevus [Unknown]
  - Acrochordon [Unknown]
  - Pruritus [Unknown]
  - Skin burning sensation [Unknown]
  - Pain of skin [Unknown]
  - Skin exfoliation [Unknown]
  - Dermatitis [Unknown]
  - Skin discomfort [Unknown]
  - Psoriasis [Unknown]
  - Drug ineffective [Unknown]
  - Condition aggravated [Unknown]
